FAERS Safety Report 5308046-6 (Version None)
Quarter: 2007Q1

REPORT INFORMATION
  Report Type: 
  Country: None (occurrence: None)
  Receive Date: 20070130
  Receipt Date: 20060501
  Transmission Date: 20070707
  Serious: Yes (Death)
  Sender: FDA-Public Use
  Company Number: 446510

PATIENT
  Age: 53 Year
  Sex: Male

DRUGS (2)
  1. RIBAVIRIN [Suspect]
     Indication: DRUG USE FOR UNKNOWN INDICATION
     Dosage: ORAL
     Route: 048
     Dates: start: 20040615, end: 20050115
  2. INTERFERON NOS (INTERFERON NOS) [Suspect]
     Indication: DRUG USE FOR UNKNOWN INDICATION
     Dosage: 1 PER WEEK OTHER
     Dates: start: 20040615, end: 20050115

REACTIONS (1)
  - COMPLETED SUICIDE [None]
